FAERS Safety Report 6461964-8 (Version None)
Quarter: 2009Q4

REPORT INFORMATION
  Report Type: 
  Country: None (occurrence: None)
  Receive Date: 20091130
  Receipt Date: 20091119
  Transmission Date: 20100525
  Serious: Yes (Other)
  Sender: FDA-Public Use
  Company Number: CA-JNJFOC-20091106099

PATIENT
  Age: 11 Year
  Sex: Female

DRUGS (2)
  1. REMICADE [Suspect]
     Indication: AUTOIMMUNE HEPATITIS
     Dosage: 5TH DOSE
     Route: 042
     Dates: start: 20090331, end: 20091030
  2. REMICADE [Suspect]
     Indication: COLITIS
     Dosage: DOSES 1-4
     Route: 042
     Dates: start: 20090331, end: 20091030

REACTIONS (1)
  - CONFUSIONAL STATE [None]
